FAERS Safety Report 6995192-4 (Version None)
Quarter: 2010Q3

REPORT INFORMATION
  Report Type: 
  Country: None (occurrence: None)
  Receive Date: 20100915
  Receipt Date: 20100902
  Transmission Date: 20110219
  Serious: Yes (Death)
  Sender: FDA-Public Use
  Company Number: UTC-001406

PATIENT
  Age: 74 Year
  Sex: Female

DRUGS (1)
  1. REMODULIN [Suspect]
     Indication: PULMONARY ARTERIAL HYPERTENSION
     Dosage: 0.153 UG/KG (0.153 UG/KG, 1 IN 1 D) INTRAVENOUS
     Route: 042
     Dates: start: 20060101

REACTIONS (1)
  - DEATH [None]
